FAERS Safety Report 9049613 (Version 6)
Quarter: 2013Q2

REPORT INFORMATION
  Report Type: Spontaneous
  Country: DK (occurrence: JP)
  Receive Date: 20130205
  Receipt Date: 20130416
  Transmission Date: 20140414
  Serious: Yes (Life-Threatening)
  Sender: FDA-Public Use
  Company Number: JP-FRI-1000042415

PATIENT
  Age: 69 Year
  Sex: Female

DRUGS (9)
  1. LEXAPRO [Suspect]
     Indication: DEPRESSION
     Dosage: 10 MG
     Route: 048
     Dates: start: 20120512, end: 20130118
  2. ETICALM [Concomitant]
     Indication: ANXIETY
     Dosage: 0.5 MG
     Route: 048
     Dates: start: 20110518, end: 20130118
  3. FLUNITRAZEPAM [Concomitant]
     Indication: INSOMNIA
     Dosage: 1 MG
     Route: 048
     Dates: start: 20120629, end: 20130118
  4. SEDIEL [Concomitant]
     Indication: DEPRESSION
     Dosage: 10 MG
     Route: 048
     Dates: start: 20121031, end: 20130118
  5. IRBETAN [Concomitant]
     Route: 048
  6. ALLERMIST [Concomitant]
     Route: 045
  7. HALCION [Concomitant]
     Route: 048
  8. GOODMIN [Concomitant]
     Route: 048
  9. TSUMURA [Concomitant]
     Route: 048

REACTIONS (1)
  - Ventricular fibrillation [Recovered/Resolved with Sequelae]
